FAERS Safety Report 13693427 (Version 1)
Quarter: 2017Q2

REPORT INFORMATION
  Report Type: Spontaneous
  Country: US (occurrence: US)
  Receive Date: 20170626
  Receipt Date: 20170626
  Transmission Date: 20170830
  Serious: No
  Sender: FDA-Public Use
  Company Number: None

PATIENT
  Age: 69 Year
  Sex: Female
  Weight: 77.4 kg

DRUGS (14)
  1. LEVOTHYROXINE. [Concomitant]
     Active Substance: LEVOTHYROXINE
  2. VENTOLIN [Concomitant]
     Active Substance: ALBUTEROL SULFATE
  3. ALBUTEROL. [Concomitant]
     Active Substance: ALBUTEROL
  4. PREDNISONE. [Concomitant]
     Active Substance: PREDNISONE
  5. ROSUVASTATIN CALCIUM. [Suspect]
     Active Substance: ROSUVASTATIN CALCIUM
     Indication: CHEST PAIN
     Dosage: ?          OTHER STRENGTH:MG;QUANTITY:30 TABLET(S);?
     Route: 048
     Dates: start: 20170207, end: 20170329
  6. HYDROCODONE [Concomitant]
     Active Substance: HYDROCODONE
  7. DULERA [Concomitant]
     Active Substance: FORMOTEROL FUMARATE DIHYDRATE\MOMETASONE FUROATE
  8. FAMOTIDINE. [Concomitant]
     Active Substance: FAMOTIDINE
  9. PEPCID COMPLETE [Concomitant]
     Active Substance: CALCIUM CARBONATE\FAMOTIDINE\MAGNESIUM HYDROXIDE
  10. ATENOLOL. [Concomitant]
     Active Substance: ATENOLOL
  11. CITRACAL [Concomitant]
     Active Substance: CALCIUM CITRATE
  12. BABY ASPIRIN [Concomitant]
     Active Substance: ASPIRIN
  13. SERTRALINE [Concomitant]
     Active Substance: SERTRALINE HYDROCHLORIDE
  14. NASONEX [Concomitant]
     Active Substance: MOMETASONE FUROATE

REACTIONS (16)
  - Vision blurred [None]
  - Palpitations [None]
  - Abdominal pain upper [None]
  - Muscle spasms [None]
  - Chest discomfort [None]
  - Speech disorder [None]
  - Fear [None]
  - Pharyngeal oedema [None]
  - Abdominal discomfort [None]
  - Headache [None]
  - Memory impairment [None]
  - Gastrooesophageal reflux disease [None]
  - Feeling hot [None]
  - Fatigue [None]
  - Feeling abnormal [None]
  - Confusional state [None]

NARRATIVE: CASE EVENT DATE: 20170307
